FAERS Safety Report 9131494 (Version 1)
Quarter: 2013Q1

REPORT INFORMATION
  Report Type: Report from Study
  Country: US (occurrence: US)
  Receive Date: 20130301
  Receipt Date: 20130301
  Transmission Date: 20140127
  Serious: No
  Sender: FDA-Public Use
  Company Number: US-MYLANLABS-2012S1006707

PATIENT
  Age: 20 Year
  Sex: Male
  Weight: 62.6 kg

DRUGS (6)
  1. AMNESTEEM CAPSULES [Suspect]
     Indication: ACNE
     Route: 048
     Dates: start: 20120111, end: 2012
  2. AMNESTEEM CAPSULES [Suspect]
     Indication: ACNE
     Route: 048
     Dates: start: 2012, end: 20120318
  3. ISOTRETINOIN [Suspect]
     Indication: ACNE
     Route: 048
     Dates: start: 2012, end: 2012
  4. DEPAKOTE [Concomitant]
     Route: 048
  5. RISPERIDONE [Concomitant]
     Indication: SCHIZOPHRENIA
     Dosage: 1MG QAM, 2MG HS
     Route: 048
  6. TRAZODONE [Concomitant]
     Indication: DEPRESSION
     Route: 048

REACTIONS (5)
  - Mood altered [Recovered/Resolved]
  - Aggression [Recovered/Resolved]
  - Anger [Recovered/Resolved]
  - Irritability [Recovered/Resolved]
  - Unevaluable event [Recovered/Resolved]
